FAERS Safety Report 9903556 (Version 1)
Quarter: 2014Q1

REPORT INFORMATION
  Report Type: Spontaneous
  Country: US (occurrence: US)
  Receive Date: 20140217
  Receipt Date: 20140217
  Transmission Date: 20141002
  Serious: No
  Sender: FDA-Public Use
  Company Number: US-009507513-1402USA007144

PATIENT
  Sex: Female

DRUGS (3)
  1. NASONEX [Suspect]
     Indication: COUGH
  2. SINGULAIR [Suspect]
     Indication: COUGH
     Route: 048
  3. DICLOFENAC [Concomitant]
     Indication: RHEUMATOID ARTHRITIS

REACTIONS (1)
  - Therapeutic product ineffective for unapproved indication [Unknown]
